FAERS Safety Report 6838840-1 (Version None)
Quarter: 2010Q3

REPORT INFORMATION
  Report Type: 
  Country: None (occurrence: None)
  Receive Date: 20100713
  Receipt Date: 20070803
  Transmission Date: 20110219
  Serious: No
  Sender: FDA-Public Use
  Company Number: US-PFIZER INC-2007042421

PATIENT
  Sex: Female
  Weight: 54.5 kg

DRUGS (4)
  1. CHANTIX [Suspect]
     Indication: SMOKING CESSATION THERAPY
     Dates: start: 20070519
  2. CRANBERRY [Concomitant]
     Indication: URINARY TRACT DISORDER
  3. VITAMIN C [Concomitant]
     Indication: URINARY TRACT DISORDER
  4. GARLIC [Concomitant]
     Indication: URINARY TRACT DISORDER

REACTIONS (1)
  - DYSURIA [None]
